FAERS Safety Report 7954735-4 (Version None)
Quarter: 2011Q4

REPORT INFORMATION
  Report Type: 
  Country: None (occurrence: None)
  Receive Date: 20111202
  Receipt Date: 20111130
  Transmission Date: 20120403
  Serious: Yes (Death)
  Sender: FDA-Public Use
  Company Number: US-BAYER-2011-115540

PATIENT
  Age: 53 Year
  Sex: Female

DRUGS (18)
  1. KEPPRA [Concomitant]
  2. BENADRYL [Concomitant]
  3. PROAIR HFA [Concomitant]
  4. FAMOTIDINE [Concomitant]
  5. WARFARIN SODIUM [Concomitant]
  6. BACLOFEN [Concomitant]
  7. ERGOCALCIFEROL [Concomitant]
  8. LOVENOX [Concomitant]
  9. METOPROLOL TARTRATE [Concomitant]
  10. FERROUS SULFATE TAB [Concomitant]
  11. AMBIEN [Concomitant]
  12. PAXIL [Concomitant]
  13. NYSTATIN [Concomitant]
  14. SANTYL [Concomitant]
  15. GABAPENTIN [Concomitant]
  16. BETASERON [Suspect]
     Indication: MULTIPLE SCLEROSIS
     Dosage: 0.25 MG, QOD
     Route: 058
     Dates: start: 20110601, end: 20111101
  17. TRICOR [Concomitant]
  18. TRICLORYL [Concomitant]

REACTIONS (1)
  - DEATH [None]
